FAERS Safety Report 8450288-5 (Version None)
Quarter: 2012Q2

REPORT INFORMATION
  Report Type: 
  Country: None (occurrence: None)
  Receive Date: 20120614
  Receipt Date: 20120614
  Transmission Date: 20120825
  Serious: Yes (Life-Threatening)
  Sender: FDA-Public Use
  Company Number: None

PATIENT
  Age: 76 Month
  Sex: Female
  Weight: 78.0187 kg

DRUGS (1)
  1. DILTIAZEM [Suspect]
     Indication: HYPERTENSION
     Dosage: 1 CAPSULE ONCE A DAY PO
     Route: 048
     Dates: start: 20120607, end: 20120611

REACTIONS (3)
  - ASTHMA [None]
  - PRODUCT SUBSTITUTION ISSUE [None]
  - DYSPNOEA [None]
